FAERS Safety Report 11806303 (Version 2)
Quarter: 2015Q4

REPORT INFORMATION
  Report Type: Spontaneous
  Country: MX (occurrence: MX)
  Receive Date: 20151207
  Receipt Date: 20151211
  Transmission Date: 20160305
  Serious: Yes (Other)
  Sender: FDA-Public Use
  Company Number: MX-ABBVIE-15K-107-1512008-00

PATIENT
  Age: 50 Year
  Sex: Female

DRUGS (1)
  1. HUMIRA [Suspect]
     Active Substance: ADALIMUMAB
     Indication: ANKYLOSING SPONDYLITIS
     Route: 058
     Dates: start: 2013, end: 201511

REACTIONS (5)
  - Lymphoma [Unknown]
  - Tuberculosis [Unknown]
  - Granuloma [Unknown]
  - Local swelling [Not Recovered/Not Resolved]
  - Lymphadenitis [Unknown]

NARRATIVE: CASE EVENT DATE: 201505
